FAERS Safety Report 10711012 (Version 2)
Quarter: 2015Q3

REPORT INFORMATION
  Report Type: Spontaneous
  Country: US (occurrence: US)
  Receive Date: 20150114
  Receipt Date: 20150721
  Transmission Date: 20151125
  Serious: Yes (Hospitalization)
  Sender: FDA-Public Use
  Company Number: US-JNJFOC-20150106873

PATIENT
  Age: 76 Year
  Sex: Male

DRUGS (24)
  1. GLYBURIDE. [Concomitant]
     Active Substance: GLYBURIDE
     Dates: end: 20121221
  2. KLOR-CON [Concomitant]
     Active Substance: POTASSIUM CHLORIDE
     Route: 048
     Dates: start: 20120622
  3. HYDROCHLOROTHIAZIDE. [Concomitant]
     Active Substance: HYDROCHLOROTHIAZIDE
     Route: 048
     Dates: start: 20120325, end: 20121216
  4. BUSPIRONE HYDROCHLORIDE. [Concomitant]
     Active Substance: BUSPIRONE HYDROCHLORIDE
     Route: 048
     Dates: start: 20121114, end: 20130131
  5. XARELTO [Suspect]
     Active Substance: RIVAROXABAN
     Indication: ATRIAL FIBRILLATION
     Route: 048
     Dates: start: 20120221, end: 20121129
  6. ASPIRIN. [Suspect]
     Active Substance: ASPIRIN
     Indication: PRODUCT USED FOR UNKNOWN INDICATION
     Dosage: FOR MORE THAN 2 WEEKS
     Route: 048
     Dates: end: 20121129
  7. FERON [Concomitant]
     Active Substance: INTERFERON BETA
  8. CYPROHEPTADINE. [Concomitant]
     Active Substance: CYPROHEPTADINE
  9. AVODART [Concomitant]
     Active Substance: DUTASTERIDE
     Route: 048
  10. NEPHRO-VITE [Concomitant]
  11. XARELTO [Suspect]
     Active Substance: RIVAROXABAN
     Indication: EMBOLISM
     Route: 048
     Dates: start: 20120221, end: 20121129
  12. ULORIC [Concomitant]
     Active Substance: FEBUXOSTAT
     Route: 048
     Dates: start: 20120325
  13. FINASTERIDE. [Concomitant]
     Active Substance: FINASTERIDE
     Route: 048
  14. SODIUM BICARBONATE. [Concomitant]
     Active Substance: SODIUM BICARBONATE
     Dates: start: 20120421, end: 20121011
  15. LACTULOSE. [Concomitant]
     Active Substance: LACTULOSE
  16. TYLENOL [Concomitant]
     Active Substance: ACETAMINOPHEN
     Route: 048
  17. XARELTO [Suspect]
     Active Substance: RIVAROXABAN
     Indication: CEREBROVASCULAR ACCIDENT PROPHYLAXIS
     Route: 048
     Dates: start: 20120221, end: 20121129
  18. CATAPRES-TTS [Concomitant]
     Active Substance: CLONIDINE
  19. AMLODIPINE [Concomitant]
     Active Substance: AMLODIPINE BESYLATE
  20. ZEMPLAR [Concomitant]
     Active Substance: PARICALCITOL
     Dates: start: 20120420
  21. COLCRYS [Concomitant]
     Active Substance: COLCHICINE
     Dates: end: 20120223
  22. METOLAZONE. [Concomitant]
     Active Substance: METOLAZONE
     Dates: start: 20120622
  23. LASIX [Concomitant]
     Active Substance: FUROSEMIDE
     Route: 048
  24. METOPROLOL [Concomitant]
     Active Substance: METOPROLOL

REACTIONS (2)
  - Large intestinal haemorrhage [Unknown]
  - Haemorrhagic anaemia [Unknown]

NARRATIVE: CASE EVENT DATE: 20121129
